FAERS Safety Report 7345600-4 (Version None)
Quarter: 2011Q1

REPORT INFORMATION
  Report Type: 
  Country: None (occurrence: None)
  Receive Date: 20110310
  Receipt Date: 20110304
  Transmission Date: 20110831
  Serious: Yes (Hospitalization)
  Sender: FDA-Public Use
  Company Number: A0895004A

PATIENT
  Age: 39 Year
  Sex: Male
  Weight: 181.8 kg

DRUGS (8)
  1. AVANDIA [Suspect]
     Dosage: 4MG PER DAY
     Route: 048
     Dates: start: 20041201, end: 20051001
  2. LAMISIL [Concomitant]
  3. EFFEXOR [Concomitant]
  4. INSULIN [Concomitant]
  5. METFORMIN [Concomitant]
  6. TOPROL-XL [Concomitant]
  7. TOPROL-XL [Concomitant]
  8. AVANDAMET [Suspect]
     Indication: DIABETES MELLITUS
     Route: 048

REACTIONS (1)
  - MYOCARDIAL INFARCTION [None]
